FAERS Safety Report 14677949 (Version 1)
Quarter: 2018Q1

REPORT INFORMATION
  Report Type: Spontaneous
  Country: FR (occurrence: FR)
  Receive Date: 20180326
  Receipt Date: 20180326
  Transmission Date: 20180509
  Serious: Yes (Other)
  Sender: FDA-Public Use
  Company Number: FR-MERCK KGAA-2044478

PATIENT
  Age: 57 Year
  Sex: Female

DRUGS (5)
  1. NOVOTHYROX [Suspect]
     Active Substance: LEVOTHYROXINE SODIUM
     Indication: PRODUCT USED FOR UNKNOWN INDICATION
     Dates: start: 2017
  2. LEVOTHYROX 125 NF [Suspect]
     Active Substance: LEVOTHYROXINE SODIUM
  3. LEVOTHYROX 125 NF [Suspect]
     Active Substance: LEVOTHYROXINE SODIUM
  4. LEVOTHYROX 125 NF [Suspect]
     Active Substance: LEVOTHYROXINE SODIUM
  5. LEVOTHYROX 125 NF [Suspect]
     Active Substance: LEVOTHYROXINE SODIUM

REACTIONS (24)
  - Hypothyroidism [None]
  - Memory impairment [None]
  - Fibromyalgia [None]
  - Malaise [None]
  - Somnolence [None]
  - Decreased interest [None]
  - Loss of personal independence in daily activities [None]
  - Insomnia [None]
  - Weight increased [None]
  - Personal relationship issue [None]
  - Arthralgia [None]
  - Vertigo [None]
  - Depression [None]
  - Social avoidant behaviour [None]
  - Alopecia [None]
  - Impaired driving ability [None]
  - Weight decreased [None]
  - Gastrointestinal disorder [None]
  - Feeling guilty [None]
  - Apathy [None]
  - Muscle spasms [None]
  - Hyperhidrosis [None]
  - Libido decreased [None]
  - Hot flush [None]

NARRATIVE: CASE EVENT DATE: 2017
